FAERS Safety Report 7713891-3 (Version None)
Quarter: 2011Q3

REPORT INFORMATION
  Report Type: 
  Country: None (occurrence: None)
  Receive Date: 20110826
  Receipt Date: 20110815
  Transmission Date: 20111222
  Serious: Yes (Other)
  Sender: FDA-Public Use
  Company Number: AR-GENENTECH-323342

PATIENT
  Sex: Female

DRUGS (1)
  1. LUCENTIS [Suspect]
     Indication: CATARACT OPERATION
     Dosage: 1 DF, UNKNOWN
     Route: 031
     Dates: start: 20100825

REACTIONS (1)
  - RETINAL DETACHMENT [None]
